FAERS Safety Report 14956996 (Version 1)
Quarter: 2018Q2

REPORT INFORMATION
  Report Type: Spontaneous
  Country: JP (occurrence: JP)
  Receive Date: 20180531
  Receipt Date: 20180531
  Transmission Date: 20180711
  Serious: Yes (Hospitalization)
  Sender: FDA-Public Use
  Company Number: PHJP2018JP011678

PATIENT
  Sex: Male

DRUGS (1)
  1. GILENYA [Suspect]
     Active Substance: FINGOLIMOD HYDROCHLORIDE
     Indication: MULTIPLE SCLEROSIS RELAPSE PROPHYLAXIS
     Dosage: UNK
     Route: 048

REACTIONS (4)
  - Rebound effect [Unknown]
  - Multiple sclerosis relapse [Unknown]
  - Hypoaesthesia [Recovering/Resolving]
  - Spinal cord disorder [Recovering/Resolving]
